FAERS Safety Report 12931464 (Version 1)
Quarter: 2016Q4

REPORT INFORMATION
  Report Type: Spontaneous
  Country: US (occurrence: US)
  Receive Date: 20161111
  Receipt Date: 20161111
  Transmission Date: 20170207
  Serious: Yes (Hospitalization)
  Sender: FDA-Public Use
  Company Number: None

PATIENT
  Age: 61 Year
  Sex: Female

DRUGS (2)
  1. RIBAVIRIN. [Suspect]
     Active Substance: RIBAVIRIN
     Indication: HEPATITIS C
     Dosage: 3C QAM/2C QPM ORAL?
     Route: 048
     Dates: start: 20161002, end: 20161031
  2. HARVONI [Suspect]
     Active Substance: LEDIPASVIR\SOFOSBUVIR
     Indication: HEPATITIS C
     Route: 048
     Dates: start: 20161002, end: 20161031

REACTIONS (3)
  - Hepatic failure [None]
  - Ascites [None]
  - Oedema [None]

NARRATIVE: CASE EVENT DATE: 20161031
